FAERS Safety Report 13818511 (Version 2)
Quarter: 2017Q4

REPORT INFORMATION
  Report Type: Spontaneous
  Country: US (occurrence: US)
  Receive Date: 20170731
  Receipt Date: 20171102
  Transmission Date: 20180320
  Serious: No
  Sender: FDA-Public Use
  Company Number: US-AMGEN-USASP2017088591

PATIENT
  Sex: Female

DRUGS (2)
  1. IMLYGIC [Suspect]
     Active Substance: TALIMOGENE LAHERPAREPVEC
     Dosage: UNK,10X6TH PFU/1 ML
     Route: 026
     Dates: start: 20170523
  2. IMLYGIC [Suspect]
     Active Substance: TALIMOGENE LAHERPAREPVEC
     Indication: MALIGNANT MELANOMA
     Dosage: UNK
     Route: 026
     Dates: start: 2017

REACTIONS (5)
  - Fatigue [Recovered/Resolved]
  - Injection site pain [Recovered/Resolved]
  - Wrong technique in product usage process [Unknown]
  - Headache [Recovered/Resolved]
  - Pain [Recovered/Resolved]

NARRATIVE: CASE EVENT DATE: 20170523
